FAERS Safety Report 4520723-3 (Version None)
Quarter: 2004Q4

REPORT INFORMATION
  Report Type: 
  Country: None (occurrence: None)
  Receive Date: 20041207
  Receipt Date: 20041202
  Transmission Date: 20050328
  Serious: Yes (Disabling, Other)
  Sender: FDA-Public Use
  Company Number: US-MERCK-0412USA00315

PATIENT
  Age: 55 Year
  Sex: Male

DRUGS (6)
  1. VIOXX [Suspect]
     Indication: RHEUMATOID ARTHRITIS
     Route: 048
     Dates: start: 20031101
  2. VIOXX [Suspect]
     Route: 048
     Dates: end: 20040301
  3. VIOXX [Suspect]
     Route: 048
     Dates: start: 20040101
  4. ALLOPURINOL [Concomitant]
     Route: 065
  5. NAPROSYN [Concomitant]
     Route: 065
  6. HYDROCODONE HYDROCHLORIDE [Concomitant]
     Route: 065

REACTIONS (7)
  - AXILLARY PAIN [None]
  - CHEST DISCOMFORT [None]
  - CHEST PAIN [None]
  - COMA [None]
  - DISABILITY [None]
  - EMOTIONAL DISTRESS [None]
  - RESPIRATORY RATE DECREASED [None]
